FAERS Safety Report 7075009-2 (Version None)
Quarter: 2010Q4

REPORT INFORMATION
  Report Type: 
  Country: None (occurrence: None)
  Receive Date: 20101029
  Receipt Date: 20100204
  Transmission Date: 20110411
  Serious: No
  Sender: FDA-Public Use
  Company Number: US-WYE-H13407510

PATIENT
  Age: 37 Year
  Sex: Male
  Weight: 73.55 kg

DRUGS (1)
  1. LORATADINE AND PSEUDOEPHEDRINE SULFATE [Suspect]
     Indication: SINUS CONGESTION
     Dosage: 1 TABLET AS NEEDED
     Route: 048
     Dates: start: 20100101

REACTIONS (2)
  - ERECTILE DYSFUNCTION [None]
  - INAPPROPRIATE SCHEDULE OF DRUG ADMINISTRATION [None]
